FAERS Safety Report 25578307 (Version 1)
Quarter: 2025Q3

REPORT INFORMATION
  Report Type: Spontaneous
  Country: US (occurrence: None)
  Receive Date: 20250718
  Receipt Date: 20250718
  Transmission Date: 20251020
  Serious: Yes (Death)
  Sender: FDA-CTU
  Company Number: None

PATIENT
  Age: 93 Year
  Sex: Female

DRUGS (2)
  1. CAPECITABINE [Suspect]
     Active Substance: CAPECITABINE
     Indication: Pancreatic carcinoma
     Dosage: 1600 MG TWICE  DAY ORAL?
     Route: 048
     Dates: start: 20250531
  2. CAPECITABINE [Suspect]
     Active Substance: CAPECITABINE
     Indication: Pancreatic carcinoma
     Dosage: 1600 MG TWICE A DAY ORAL
     Route: 048
     Dates: start: 20250531

REACTIONS (1)
  - Death [None]

NARRATIVE: CASE EVENT DATE: 20250630
